FAERS Safety Report 17721899 (Version 2)
Quarter: 2020Q2

REPORT INFORMATION
  Report Type: Spontaneous
  Country: JP (occurrence: JP)
  Receive Date: 20200429
  Receipt Date: 20200622
  Transmission Date: 20200714
  Serious: Yes (Hospitalization)
  Sender: FDA-Public Use
  Company Number: JP-009507513-2004JPN001764J

PATIENT
  Age: 69 Year
  Sex: Male

DRUGS (3)
  1. AMLODIPINE [Concomitant]
     Active Substance: AMLODIPINE BESYLATE
     Indication: HYPERTENSION
     Dosage: UNK
     Route: 048
  2. INSULIN [Concomitant]
     Active Substance: INSULIN NOS
     Indication: TYPE 2 DIABETES MELLITUS
     Dosage: UNK
     Route: 058
  3. KEYTRUDA [Suspect]
     Active Substance: PEMBROLIZUMAB
     Indication: TRANSITIONAL CELL CARCINOMA
     Dosage: 200 MILLIGRAM, Q3W
     Route: 041
     Dates: start: 201810, end: 202004

REACTIONS (2)
  - Blood creatinine increased [Recovered/Resolved]
  - Anaemia [Recovered/Resolved]

NARRATIVE: CASE EVENT DATE: 20200413
